FAERS Safety Report 19988108 (Version 2)
Quarter: 2021Q4

REPORT INFORMATION
  Report Type: Spontaneous
  Country: ID (occurrence: ID)
  Receive Date: 20211022
  Receipt Date: 20211214
  Transmission Date: 20220303
  Serious: Yes (Hospitalization, Other)
  Sender: FDA-Public Use
  Company Number: None

PATIENT
  Age: 17 Year
  Sex: Female

DRUGS (3)
  1. TRAMADOL [Suspect]
     Active Substance: TRAMADOL
     Indication: Product used for unknown indication
     Dosage: UNK
     Route: 048
     Dates: start: 20201112
  2. CLONAZEPAM [Suspect]
     Active Substance: CLONAZEPAM
     Indication: Product used for unknown indication
     Dosage: UNK
     Route: 048
     Dates: start: 20201112
  3. CHLORPROMAZINE [Suspect]
     Active Substance: CHLORPROMAZINE
     Indication: Product used for unknown indication
     Dosage: UNK
     Route: 048
     Dates: start: 20201112

REACTIONS (17)
  - Vomiting [Recovered/Resolved]
  - Depressed level of consciousness [Unknown]
  - Seizure [Unknown]
  - Partial seizures [Recovered/Resolved]
  - Generalised tonic-clonic seizure [Recovered/Resolved]
  - Behaviour disorder [Unknown]
  - Nausea [Unknown]
  - Mental disorder [Unknown]
  - Brain oedema [Recovered/Resolved]
  - Depressed level of consciousness [Unknown]
  - Status epilepticus [Recovered/Resolved]
  - Agitation [Unknown]
  - Loss of consciousness [Recovered/Resolved]
  - Toxicity to various agents [Unknown]
  - Substance use [Unknown]
  - Drug abuse [Unknown]
  - Overdose [Unknown]

NARRATIVE: CASE EVENT DATE: 20201112
